FAERS Safety Report 6990497-5 (Version None)
Quarter: 2010Q3

REPORT INFORMATION
  Report Type: 
  Country: None (occurrence: None)
  Receive Date: 20100916
  Receipt Date: 20100702
  Transmission Date: 20110219
  Serious: Yes (Other)
  Sender: FDA-Public Use
  Company Number: TH-PFIZER INC-2010083746

PATIENT
  Age: 32 Year
  Sex: Male

DRUGS (3)
  1. GABAPENTIN [Suspect]
     Indication: NEURALGIA
     Dosage: UNK
  2. PREGABALIN [Suspect]
     Indication: NEURALGIA
     Dosage: UNK
  3. TRAMADOL [Concomitant]
     Indication: NEURALGIA
     Dosage: UNK

REACTIONS (2)
  - BREAST PAIN [None]
  - GYNAECOMASTIA [None]
